FAERS Safety Report 10225061 (Version 1)
Quarter: 2014Q2

REPORT INFORMATION
  Report Type: Spontaneous
  Country: US (occurrence: US)
  Receive Date: 20140609
  Receipt Date: 20140609
  Transmission Date: 20141212
  Serious: No
  Sender: FDA-Public Use
  Company Number: US-ASTRAZENECA-2014SE36972

PATIENT
  Age: 65 Year
  Sex: Female
  Weight: 104.3 kg

DRUGS (1)
  1. NEXIUM [Suspect]
     Indication: GASTROOESOPHAGEAL REFLUX DISEASE
     Dosage: EVERY MORNING
     Route: 048
     Dates: end: 2013

REACTIONS (2)
  - Pain [Not Recovered/Not Resolved]
  - Intentional product misuse [Unknown]
